FAERS Safety Report 8923171 (Version 2)
Quarter: 2012Q4

REPORT INFORMATION
  Report Type: 
  Country: US (occurrence: US)
  Receive Date: 20121123
  Receipt Date: 20121217
  Transmission Date: 20130627
  Serious: Yes (Other)
  Sender: FDA-Public Use
  Company Number: US-PFIZER INC-2012293225

PATIENT
  Age: 74 Year
  Sex: Female
  Weight: 60.77 kg

DRUGS (3)
  1. TIKOSYN [Suspect]
     Indication: ATRIAL FIBRILLATION
     Dosage: 0.25 mg, 2x/day
     Route: 048
     Dates: start: 20120302
  2. XARELTO [Concomitant]
     Indication: ANTICOAGULANT THERAPY
     Dosage: UNK
  3. ATORVASTATIN [Concomitant]
     Indication: HIGH CHOLESTEROL
     Dosage: UNK

REACTIONS (4)
  - Bradycardia [Unknown]
  - Vertigo [Unknown]
  - Weight increased [Unknown]
  - Allergy to animal [Unknown]
